FAERS Safety Report 21911242 (Version 6)
Quarter: 2023Q2

REPORT INFORMATION
  Report Type: Report from Study
  Country: US (occurrence: US)
  Receive Date: 20230125
  Receipt Date: 20230607
  Transmission Date: 20230721
  Serious: Yes (Other)
  Sender: FDA-Public Use
  Company Number: US-JAZZ-2022-US-036644

PATIENT
  Sex: Male

DRUGS (3)
  1. XYWAV [Suspect]
     Active Substance: CALCIUM OXYBATE\MAGNESIUM OXYBATE\POTASSIUM OXYBATE\SODIUM OXYBATE
     Indication: Narcolepsy
     Dosage: 3.75 GRAM, BID
  2. XYWAV [Suspect]
     Active Substance: CALCIUM OXYBATE\MAGNESIUM OXYBATE\POTASSIUM OXYBATE\SODIUM OXYBATE
     Indication: Cataplexy
     Dosage: 4.5 GRAM, BID
  3. XYWAV [Suspect]
     Active Substance: CALCIUM OXYBATE\MAGNESIUM OXYBATE\POTASSIUM OXYBATE\SODIUM OXYBATE
     Indication: Somnolence

REACTIONS (12)
  - Cardiac flutter [Unknown]
  - Abnormal dreams [Unknown]
  - Nightmare [Unknown]
  - Anxiety [Unknown]
  - Nervousness [Unknown]
  - Dysphonia [Unknown]
  - Dizziness [Unknown]
  - Nausea [Unknown]
  - Adverse drug reaction [Unknown]
  - Therapeutic response shortened [Unknown]
  - Intentional dose omission [Unknown]
  - Product dose omission issue [Unknown]
